FAERS Safety Report 24307771 (Version 2)
Quarter: 2024Q3

REPORT INFORMATION
  Report Type: Report from Study
  Country: US (occurrence: US)
  Receive Date: 20240911
  Receipt Date: 20240913
  Transmission Date: 20241017
  Serious: Yes (Other)
  Sender: NOVARTIS
  Company Number: US-002147023-NVSC2024US179673

PATIENT
  Age: 54 Year
  Sex: Female
  Weight: 49.9 kg

DRUGS (9)
  1. LAMPRENE [Suspect]
     Active Substance: CLOFAZIMINE
     Indication: Atypical mycobacterial infection
     Dosage: 100 MG, QD
     Route: 048
     Dates: start: 20240206, end: 20240603
  2. LAMPRENE [Suspect]
     Active Substance: CLOFAZIMINE
     Indication: Mycobacterium avium complex infection
     Dosage: 50 MG, QD
     Route: 048
     Dates: start: 20240604
  3. LAMPRENE [Suspect]
     Active Substance: CLOFAZIMINE
     Indication: Mycobacterium abscessus infection
  4. AZITHROMYCIN [Concomitant]
     Active Substance: AZITHROMYCIN
     Indication: Product used for unknown indication
     Dosage: 500 MG, QD
     Route: 065
  5. ETB [Concomitant]
     Indication: Product used for unknown indication
     Dosage: 800 MG, QD
     Route: 048
  6. RIFAMPIN [Concomitant]
     Active Substance: RIFAMPIN
     Indication: Product used for unknown indication
     Dosage: 450 MG, QD, (DOSE ADJUSTED FOR WEIGHT LESS THAN 50 KG)
     Route: 065
  7. AMIKACIN [Concomitant]
     Active Substance: AMIKACIN
     Indication: Product used for unknown indication
     Dosage: 900 MG, SUN, WED AND FRI
     Route: 042
     Dates: start: 20240901, end: 20240904
  8. OMADACYCLINE [Concomitant]
     Active Substance: OMADACYCLINE
     Indication: Product used for unknown indication
     Dosage: 1 DOSAGE FORM, QD
     Route: 065
  9. SODIUM CHLORIDE [Concomitant]
     Active Substance: SODIUM CHLORIDE
     Indication: Product used for unknown indication
     Dosage: 4 ML, Q12H VIA NEBULIZER
     Route: 065

REACTIONS (8)
  - Nephrolithiasis [Unknown]
  - Abdominal pain upper [Recovering/Resolving]
  - Nausea [Recovering/Resolving]
  - Skin discolouration [Not Recovered/Not Resolved]
  - Diarrhoea [Recovering/Resolving]
  - Tinnitus [Not Recovered/Not Resolved]
  - Gallbladder disorder [Unknown]
  - White blood cell count decreased [Unknown]

NARRATIVE: CASE EVENT DATE: 20240503
